FAERS Safety Report 6060191-6 (Version None)
Quarter: 2009Q1

REPORT INFORMATION
  Report Type: 
  Country: None (occurrence: None)
  Receive Date: 20090128
  Receipt Date: 20090115
  Transmission Date: 20090719
  Serious: Yes (Hospitalization, Other)
  Sender: FDA-Public Use
  Company Number: 230533K09USA

PATIENT
  Age: 66 Year
  Sex: Female

DRUGS (7)
  1. REBIF [Suspect]
     Indication: MULTIPLE SCLEROSIS
     Dosage: 44 MCG, 3 IN 1 WEEKS, SUBCUTANEOUS
     Route: 058
     Dates: start: 20030701
  2. METOPROLOL (METOPROLOL /00376901/) [Concomitant]
  3. HYDRALAZINE HCL [Concomitant]
  4. FELODIPINE [Concomitant]
  5. LIPITOR [Concomitant]
  6. UNSPECIFIED THYROID MEDICATION (THYROID THERAPY) [Concomitant]
  7. INSULIN (INSULIN /00030501/) [Concomitant]

REACTIONS (6)
  - DIALYSIS [None]
  - INJECTION SITE CELLULITIS [None]
  - INJECTION SITE ERYTHEMA [None]
  - INJECTION SITE INFLAMMATION [None]
  - INJECTION SITE PAIN [None]
  - RENAL DISORDER [None]
